FAERS Safety Report 16436753 (Version 2)
Quarter: 2019Q3

REPORT INFORMATION
  Report Type: Spontaneous
  Country: MX (occurrence: MX)
  Receive Date: 20190614
  Receipt Date: 20190702
  Transmission Date: 20191004
  Serious: Yes (Hospitalization, Other)
  Sender: FDA-Public Use
  Company Number: MX-009507513-1906MEX004652

PATIENT
  Age: 25 Year
  Sex: Female

DRUGS (2)
  1. GONADOTROPIN, CHORIONIC [Suspect]
     Active Substance: CHORIOGONADOTROPIN ALFA
     Indication: CONTROLLED OVARIAN STIMULATION
     Dosage: UNK
  2. MENOTROPINS [Suspect]
     Active Substance: MENOTROPINS
     Indication: CONTROLLED OVARIAN STIMULATION

REACTIONS (2)
  - Ovarian hyperstimulation syndrome [Recovered/Resolved]
  - Maternal exposure before pregnancy [Recovered/Resolved]
